FAERS Safety Report 18361783 (Version 4)
Quarter: 2021Q3

REPORT INFORMATION
  Report Type: Spontaneous
  Country: US (occurrence: US)
  Receive Date: 20201008
  Receipt Date: 20210907
  Transmission Date: 20211014
  Serious: Yes (Hospitalization, Other)
  Sender: FDA-Public Use
  Company Number: US-ASTRAZENECA-2020SF27234

PATIENT
  Age: 16070 Day
  Sex: Male
  Weight: 99.8 kg

DRUGS (61)
  1. HYDROCODONE?ACETAMIN [Concomitant]
     Active Substance: ACETAMINOPHEN\HYDROCODONE
     Dates: start: 20170927
  2. HUMALOG [Concomitant]
     Active Substance: INSULIN LISPRO
     Dates: start: 20170814
  3. OXYCODONE [Concomitant]
     Active Substance: OXYCODONE
     Dates: start: 20170713
  4. FENOFIBRATE. [Concomitant]
     Active Substance: FENOFIBRATE
     Dates: start: 20160809
  5. BUPROPION. [Concomitant]
     Active Substance: BUPROPION
     Dates: start: 20060109
  6. LANTUS [Concomitant]
     Active Substance: INSULIN GLARGINE
  7. OLMESARTAN MEDOXOMIL?HCTZ [Concomitant]
  8. FARXIGA [Suspect]
     Active Substance: DAPAGLIFLOZIN PROPANEDIOL
     Indication: WEIGHT DECREASED
     Route: 048
     Dates: start: 20161108, end: 20170626
  9. FARXIGA [Suspect]
     Active Substance: DAPAGLIFLOZIN PROPANEDIOL
     Indication: TYPE 2 DIABETES MELLITUS
     Route: 048
     Dates: start: 20161109
  10. AZITHROMYCIN ANHYDROUS. [Concomitant]
     Active Substance: AZITHROMYCIN ANHYDROUS
     Dates: start: 20180611
  11. CITALOPRAM [Concomitant]
     Active Substance: CITALOPRAM HYDROBROMIDE
     Dates: start: 20180522
  12. GABAPENTIN. [Concomitant]
     Active Substance: GABAPENTIN
     Dates: start: 20170616
  13. FAMOTIDINE. [Concomitant]
     Active Substance: FAMOTIDINE
     Dates: start: 20170717
  14. VANCOMYCIN [Concomitant]
     Active Substance: VANCOMYCIN
     Dates: start: 20170712
  15. GEMFIBROZIL. [Concomitant]
     Active Substance: GEMFIBROZIL
     Dates: start: 20060109
  16. OMACOR [Concomitant]
     Active Substance: OMEGA-3-ACID ETHYL ESTERS
     Dates: start: 20060109
  17. MICONAZOLE. [Concomitant]
     Active Substance: MICONAZOLE
     Dates: start: 20060109
  18. CHANTIX [Concomitant]
     Active Substance: VARENICLINE TARTRATE
  19. LOSARTAN. [Concomitant]
     Active Substance: LOSARTAN
     Dates: start: 20180522
  20. IVERMECTIN. [Concomitant]
     Active Substance: IVERMECTIN
     Dates: start: 20160819
  21. TRIAMCINOLONE [Concomitant]
     Active Substance: TRIAMCINOLONE
     Dates: start: 20160819
  22. HYDROCHLOROTHIAZIDE. [Concomitant]
     Active Substance: HYDROCHLOROTHIAZIDE
     Dates: start: 20160809
  23. HEPARIN [Concomitant]
     Active Substance: HEPARIN SODIUM
     Dates: start: 20170712
  24. JANUVIA [Concomitant]
     Active Substance: SITAGLIPTIN PHOSPHATE
     Dates: start: 20060109
  25. CEFTRIAXONE. [Concomitant]
     Active Substance: CEFTRIAXONE
  26. ENOXAPARIN [Concomitant]
     Active Substance: ENOXAPARIN
  27. NYSTATIN. [Concomitant]
     Active Substance: NYSTATIN
  28. INVOKANA [Concomitant]
     Active Substance: CANAGLIFLOZIN
     Dates: start: 20160819
  29. PERMETHRIN. [Concomitant]
     Active Substance: PERMETHRIN
     Dates: start: 20160819
  30. ESCITALOPRAM [Concomitant]
     Active Substance: ESCITALOPRAM OXALATE
     Dates: start: 20170713
  31. CELEBREX [Concomitant]
     Active Substance: CELECOXIB
     Dates: start: 20060109
  32. PROPOFOL. [Concomitant]
     Active Substance: PROPOFOL
     Dates: start: 20060109
  33. OLMESARTAN [Concomitant]
     Active Substance: OLMESARTAN
  34. DIAZEPAM. [Concomitant]
     Active Substance: DIAZEPAM
     Dates: start: 20170616
  35. FARXIGA [Suspect]
     Active Substance: DAPAGLIFLOZIN PROPANEDIOL
     Indication: WEIGHT DECREASED
     Route: 048
     Dates: start: 20161109
  36. SENNA [Concomitant]
     Active Substance: SENNA LEAF\SENNOSIDES\SENNOSIDES A AND B
     Dates: start: 20170717
  37. LEVOFLOXACIN. [Concomitant]
     Active Substance: LEVOFLOXACIN
     Dates: start: 20060109
  38. ATORVASTATIN CALCIUM. [Concomitant]
     Active Substance: ATORVASTATIN CALCIUM
  39. AMOXICILLIN TRIHYDRATE [Concomitant]
     Active Substance: AMOXICILLIN
  40. CIPROFLOXACIN. [Concomitant]
     Active Substance: CIPROFLOXACIN
     Dates: start: 20170714
  41. NOVOLOG [Concomitant]
     Active Substance: INSULIN ASPART
     Dates: start: 20160809
  42. NIFEDIPINE. [Concomitant]
     Active Substance: NIFEDIPINE
     Dates: start: 20170616
  43. FENTANYL. [Concomitant]
     Active Substance: FENTANYL
     Dates: start: 20170712
  44. ACTOS [Concomitant]
     Active Substance: PIOGLITAZONE HYDROCHLORIDE
     Dates: start: 20060109
  45. METRONIDAZOLE. [Concomitant]
     Active Substance: METRONIDAZOLE
     Dates: start: 20060109
  46. CITALOPRAM HYDROCHLORIDE [Concomitant]
     Active Substance: CITALOPRAM HYDROCHLORIDE
  47. POTASSIUM CALVULANATE [Concomitant]
  48. FARXIGA [Suspect]
     Active Substance: DAPAGLIFLOZIN PROPANEDIOL
     Indication: HYPOTENSION
     Route: 048
     Dates: start: 20161108, end: 20170626
  49. FARXIGA [Suspect]
     Active Substance: DAPAGLIFLOZIN PROPANEDIOL
     Indication: HYPOTENSION
     Route: 048
     Dates: start: 20161109
  50. ATORVASTATIN [Concomitant]
     Active Substance: ATORVASTATIN
     Dates: start: 20180522
  51. METFORMIN [Concomitant]
     Active Substance: METFORMIN HYDROCHLORIDE
     Dates: start: 20180522
  52. VICTOZA [Concomitant]
     Active Substance: LIRAGLUTIDE
     Dates: start: 20180522
  53. LIDOCAINE. [Concomitant]
     Active Substance: LIDOCAINE
     Dates: start: 20170616
  54. SCOPOLAMINE [Concomitant]
     Active Substance: SCOPOLAMINE
     Dates: start: 20170712
  55. FARXIGA [Suspect]
     Active Substance: DAPAGLIFLOZIN PROPANEDIOL
     Indication: TYPE 2 DIABETES MELLITUS
     Route: 048
     Dates: start: 20161108, end: 20170626
  56. TEMAZEPAM. [Concomitant]
     Active Substance: TEMAZEPAM
     Dates: start: 20180522
  57. TRIMIPRAMINE/SULFAMETHOXAZOLE [Concomitant]
     Dates: start: 20170927
  58. BETAMETHASONE. [Concomitant]
     Active Substance: BETAMETHASONE
     Dates: start: 20160809
  59. DOCUSATE [Concomitant]
     Active Substance: DOCUSATE
     Dates: start: 20170712
  60. METOCLOPRAMIDE. [Concomitant]
     Active Substance: METOCLOPRAMIDE
     Dates: start: 20060109
  61. METFORMIN HYDROCHLORIDE. [Concomitant]
     Active Substance: METFORMIN HYDROCHLORIDE

REACTIONS (18)
  - Colon gangrene [Unknown]
  - Cellulitis [Unknown]
  - Necrosis [Unknown]
  - Scar [Unknown]
  - Scrotal abscess [Unknown]
  - Rectal abscess [Unknown]
  - Perineal abscess [Unknown]
  - Perirectal abscess [Unknown]
  - Sepsis [Unknown]
  - Necrotising fasciitis [Unknown]
  - Fournier^s gangrene [Unknown]
  - Cellulitis of male external genital organ [Unknown]
  - Abscess limb [Unknown]
  - Deformity [Unknown]
  - Nerve injury [Unknown]
  - Pain [Unknown]
  - Infected dermal cyst [Unknown]
  - Anal incontinence [Unknown]

NARRATIVE: CASE EVENT DATE: 20170414
